FAERS Safety Report 13067985 (Version 1)
Quarter: 2016Q4

REPORT INFORMATION
  Report Type: Spontaneous
  Country: GB (occurrence: GB)
  Receive Date: 20161228
  Receipt Date: 20161228
  Transmission Date: 20170207
  Serious: Yes (Other)
  Sender: FDA-Public Use
  Company Number: GB-TEVA-721858ACC

PATIENT
  Age: 82 Year
  Sex: Female

DRUGS (10)
  1. OMEPRAZOLE. [Concomitant]
     Active Substance: OMEPRAZOLE
  2. FELODIPINE. [Concomitant]
     Active Substance: FELODIPINE
  3. GABAPENTIN. [Concomitant]
     Active Substance: GABAPENTIN
  4. MOXIFLOXACIN. [Suspect]
     Active Substance: MOXIFLOXACIN
     Dosage: 400 MILLIGRAM DAILY;
  5. CO-DYDRAMOL [Concomitant]
     Active Substance: ACETAMINOPHEN\DIHYDROCODEINE
  6. NITRAZEPAM [Concomitant]
     Active Substance: NITRAZEPAM
  7. ANASTROZOLE. [Concomitant]
     Active Substance: ANASTROZOLE
  8. NITROFURANTOIN. [Suspect]
     Active Substance: NITROFURANTOIN
     Dosage: 200 MILLIGRAM DAILY;
  9. BUPRENORPHINE. [Concomitant]
     Active Substance: BUPRENORPHINE
  10. QUININE [Concomitant]
     Active Substance: QUININE

REACTIONS (1)
  - Joint swelling [Unknown]

NARRATIVE: CASE EVENT DATE: 20161123
